FAERS Safety Report 21496603 (Version 1)
Quarter: 2022Q4

REPORT INFORMATION
  Report Type: Report from Study
  Country: CA (occurrence: CA)
  Receive Date: 20221022
  Receipt Date: 20221022
  Transmission Date: 20230113
  Serious: Yes (Other)
  Sender: FDA-Public Use
  Company Number: CA-TEVA-2022-CA-2818431

PATIENT
  Age: 69 Year
  Sex: Male
  Weight: 75 kg

DRUGS (6)
  1. CINQAIR [Suspect]
     Active Substance: RESLIZUMAB
     Indication: Asthma
     Dosage: 252.00, LAST INFUSION DATE: 16-SEP-2022
     Route: 042
     Dates: start: 20210526
  2. PREDNISONE [Concomitant]
     Active Substance: PREDNISONE
     Indication: Adrenal insufficiency
     Dosage: 40- 50MG BURSTS/10- 20MG DAILY
     Route: 065
  3. PULMICORT TURBUHALER [Concomitant]
     Active Substance: BUDESONIDE
     Indication: Product used for unknown indication
     Dosage: 200 2 INH BID,
     Route: 065
  4. SYMBICORT [Concomitant]
     Active Substance: BUDESONIDE\FORMOTEROL FUMARATE DIHYDRATE
     Indication: Product used for unknown indication
     Dosage: 200 2 INH BID
     Route: 065
  5. Mepolizumbab [Concomitant]
     Indication: Product used for unknown indication
     Route: 065
     Dates: start: 20170701, end: 20181001
  6. BENRALIZUMAB [Concomitant]
     Active Substance: BENRALIZUMAB
     Indication: Product used for unknown indication
     Route: 065
     Dates: start: 20190101, end: 20191101

REACTIONS (2)
  - Lung disorder [Recovering/Resolving]
  - Weight decreased [Unknown]

NARRATIVE: CASE EVENT DATE: 20220101
